FAERS Safety Report 11151760 (Version 1)
Quarter: 2015Q2

REPORT INFORMATION
  Report Type: Spontaneous
  Country: BR (occurrence: BR)
  Receive Date: 20150601
  Receipt Date: 20150601
  Transmission Date: 20150821
  Serious: Yes (Other)
  Sender: FDA-Public Use
  Company Number: BR-SA-2015SA071583

PATIENT
  Sex: Male
  Weight: 70 kg

DRUGS (4)
  1. BRASART BCC [Concomitant]
     Indication: HYPERTENSION
  2. LANTUS [Suspect]
     Active Substance: INSULIN GLARGINE
     Indication: TYPE 1 DIABETES MELLITUS
     Route: 058
     Dates: start: 2007
  3. TRADJENTA [Concomitant]
     Active Substance: LINAGLIPTIN
  4. AUTOPEN 24 [Concomitant]
     Active Substance: DEVICE
     Indication: DEVICE THERAPY

REACTIONS (6)
  - Retinal detachment [Recovered/Resolved]
  - Eye haemorrhage [Recovered/Resolved]
  - Visual impairment [Recovered/Resolved]
  - Hypertension [Not Recovered/Not Resolved]
  - Vision blurred [Recovered/Resolved]
  - Nervousness [Not Recovered/Not Resolved]

NARRATIVE: CASE EVENT DATE: 2014
